FAERS Safety Report 14686310 (Version 1)
Quarter: 2018Q1

REPORT INFORMATION
  Report Type: Spontaneous
  Country: US (occurrence: US)
  Receive Date: 20180326
  Receipt Date: 20180326
  Transmission Date: 20180509
  Serious: Yes (Other)
  Sender: FDA-Public Use
  Company Number: None

PATIENT
  Age: 62 Year
  Sex: Male
  Weight: 69.75 kg

DRUGS (1)
  1. AMLODIPINE [Suspect]
     Active Substance: AMLODIPINE BESYLATE
     Indication: HYPERTENSION
     Dosage: ?          QUANTITY:30 TABLET(S);?
     Route: 048
     Dates: start: 20180104, end: 20180122

REACTIONS (6)
  - Vision blurred [None]
  - Visual impairment [None]
  - Decreased appetite [None]
  - Cerebrovascular accident [None]
  - Epistaxis [None]
  - Retinal disorder [None]

NARRATIVE: CASE EVENT DATE: 20180201
